FAERS Safety Report 5258888-0 (Version None)
Quarter: 2007Q1

REPORT INFORMATION
  Report Type: 
  Country: None (occurrence: None)
  Receive Date: 20070308
  Receipt Date: 20070221
  Transmission Date: 20070707
  Serious: Yes (Hospitalization)
  Sender: FDA-Public Use
  Company Number: GB-BRISTOL-MYERS SQUIBB COMPANY-13703806

PATIENT
  Age: 62 Year
  Sex: Male

DRUGS (2)
  1. CISPLATIN [Suspect]
     Indication: SQUAMOUS CELL CARCINOMA
     Route: 042
     Dates: start: 20051012, end: 20051012
  2. FLUOROURACIL [Suspect]
     Indication: SQUAMOUS CELL CARCINOMA
     Route: 042
     Dates: start: 20051012, end: 20051012

REACTIONS (3)
  - CHILLS [None]
  - FATIGUE [None]
  - PYREXIA [None]
